FAERS Safety Report 11222798 (Version 1)
Quarter: 2015Q2

REPORT INFORMATION
  Report Type: Spontaneous
  Country: IT (occurrence: IT)
  Receive Date: 20150626
  Receipt Date: 20150626
  Transmission Date: 20150821
  Serious: Yes (Life-Threatening, Other)
  Sender: FDA-Public Use
  Company Number: IT-PFIZER INC-2015210784

PATIENT
  Age: 59 Year
  Sex: Male
  Weight: 80 kg

DRUGS (12)
  1. CATAPRESAN TTS [Suspect]
     Active Substance: CLONIDINE
     Indication: HYPERTENSION
     Dosage: 5 MG, WEEKLY
     Route: 062
     Dates: start: 20150616
  2. TICLOPIDINE [Concomitant]
     Active Substance: TICLOPIDINE
     Dosage: 250 MG, UNK
  3. PANTORC [Concomitant]
     Active Substance: PANTOPRAZOLE SODIUM
     Dosage: 40 MG, UNK
  4. NITROGLICERINA [Concomitant]
     Active Substance: NITROGLYCERIN
     Dosage: 15 MG, UNK
     Route: 062
  5. SERTRALINE [Concomitant]
     Active Substance: SERTRALINE HYDROCHLORIDE
     Indication: DEPRESSION
     Dosage: 50 MG, UNK
  6. TRIATEC /00885601/ [Concomitant]
     Active Substance: RAMIPRIL
     Dosage: 5 MG, UNK
  7. MERREM [Concomitant]
     Active Substance: MEROPENEM
     Dosage: 500 MG, UNK
  8. LOSARTAN [Concomitant]
     Active Substance: LOSARTAN
     Dosage: 50 MG, UNK
  9. CARDURA [Suspect]
     Active Substance: DOXAZOSIN MESYLATE
     Indication: HYPERTENSION
     Dosage: 4 MG, DAILY
     Route: 048
     Dates: start: 20150616, end: 20150618
  10. CARVEDILOL. [Concomitant]
     Active Substance: CARVEDILOL
     Dosage: UNK
  11. CALCIPARINA [Concomitant]
     Active Substance: HEPARIN CALCIUM
     Dosage: 0.2 ML, UNK
  12. DAPTOMICINA [Concomitant]
     Dosage: 500 MG, UNK

REACTIONS (3)
  - Cardiac arrest [Unknown]
  - Electrocardiogram QT prolonged [Unknown]
  - Ventricular fibrillation [Unknown]

NARRATIVE: CASE EVENT DATE: 20150618
